FAERS Safety Report 5509702-7 (Version None)
Quarter: 2007Q4

REPORT INFORMATION
  Report Type: 
  Country: None (occurrence: None)
  Receive Date: 20071108
  Receipt Date: 20071031
  Transmission Date: 20080405
  Serious: Yes (Hospitalization)
  Sender: FDA-Public Use
  Company Number: US-JNJFOC-20070903111

PATIENT
  Age: 12 Year
  Sex: Male
  Weight: 46.27 kg

DRUGS (2)
  1. INVEGA [Suspect]
     Indication: AUTISM
     Route: 048
     Dates: start: 20070601, end: 20070630
  2. STRATTERA [Concomitant]
     Indication: DRUG USE FOR UNKNOWN INDICATION
     Dates: start: 20050409

REACTIONS (1)
  - RASH [None]
